FAERS Safety Report 5219351-6 (Version None)
Quarter: 2007Q1

REPORT INFORMATION
  Report Type: 
  Country: None (occurrence: None)
  Receive Date: 20061201
  Receipt Date: 20060728
  Transmission Date: 20070707
  Serious: No
  Sender: FDA-Public Use
  Company Number: 2006PV018421

PATIENT
  Age: 73 Year
  Sex: Male
  Weight: 114.5332 kg

DRUGS (5)
  1. BYETTA [Suspect]
     Indication: WEIGHT DECREASED
     Dosage: SEE IMAGE
     Route: 058
     Dates: start: 20060601, end: 20060630
  2. BYETTA [Suspect]
     Indication: WEIGHT DECREASED
     Dosage: SEE IMAGE
     Route: 058
     Dates: start: 20060701
  3. LIPITOR [Concomitant]
  4. NORVASC [Concomitant]
  5. LOPRESSOR [Concomitant]

REACTIONS (1)
  - WEIGHT DECREASED [None]
